FAERS Safety Report 11163803 (Version 1)
Quarter: 2015Q2

REPORT INFORMATION
  Report Type: Spontaneous
  Country: FR (occurrence: FR)
  Receive Date: 20150604
  Receipt Date: 20150604
  Transmission Date: 20150821
  Serious: Yes (Hospitalization)
  Sender: FDA-Public Use
  Company Number: FR-SA-2015SA076028

PATIENT
  Age: 74 Year
  Sex: Female

DRUGS (8)
  1. DIFFU K [Suspect]
     Active Substance: POTASSIUM CHLORIDE
     Dosage: 6 IN 1 DAY
     Route: 048
  2. TAHOR [Concomitant]
     Active Substance: ATORVASTATIN CALCIUM
  3. KARDEGIC [Concomitant]
     Active Substance: ASPIRIN LYSINE
  4. NEO MERCAZOLE [Concomitant]
     Active Substance: CARBIMAZOLE
  5. INEXIUM [Concomitant]
     Active Substance: ESOMEPRAZOLE
  6. LASILIX [Suspect]
     Active Substance: FUROSEMIDE
     Indication: HYPERTENSION
     Route: 048
  7. RENITEC [Suspect]
     Active Substance: ENALAPRIL MALEATE
     Indication: HYPERTENSION
     Route: 048
  8. EUCREAS [Concomitant]
     Active Substance: METFORMIN HYDROCHLORIDE\VILDAGLIPTIN
     Indication: TYPE 2 DIABETES MELLITUS

REACTIONS (2)
  - Hyperkalaemia [Recovered/Resolved]
  - Acute kidney injury [Recovered/Resolved]

NARRATIVE: CASE EVENT DATE: 201401
